FAERS Safety Report 6576643-6 (Version None)
Quarter: 2010Q1

REPORT INFORMATION
  Report Type: 
  Country: None (occurrence: None)
  Receive Date: 20100210
  Receipt Date: 20100129
  Transmission Date: 20100710
  Serious: Yes (Other)
  Sender: FDA-Public Use
  Company Number: US-PFIZER INC-2010015555

PATIENT
  Sex: Male
  Weight: 73.469 kg

DRUGS (1)
  1. DOSTINEX [Suspect]
     Indication: HYPERPROLACTINAEMIA
     Route: 048

REACTIONS (2)
  - BLOOD PROLACTIN INCREASED [None]
  - HEPATIC ENZYME INCREASED [None]
